FAERS Safety Report 9564893 (Version 2)
Quarter: 2014Q1

REPORT INFORMATION
  Report Type: Spontaneous
  Country: US (occurrence: US)
  Receive Date: 20130930
  Receipt Date: 20140102
  Transmission Date: 20141002
  Serious: Yes (Hospitalization)
  Sender: FDA-Public Use
  Company Number: US-UCBSA-098342

PATIENT
  Age: 62 Year
  Sex: Male

DRUGS (5)
  1. CIMZIA [Suspect]
     Indication: CROHN^S DISEASE
     Dates: start: 20120629, end: 2013
  2. XARELTO [Concomitant]
     Indication: THROMBOSIS
     Dates: start: 20131029
  3. DOXAZOSIN [Concomitant]
     Indication: BLOOD PRESSURE
  4. RAMIPRIL [Concomitant]
     Indication: BLOOD PRESSURE
  5. OMEPRAZOLE [Concomitant]
     Indication: GASTROOESOPHAGEAL REFLUX DISEASE

REACTIONS (1)
  - Thrombosis [Not Recovered/Not Resolved]
